FAERS Safety Report 8261906-9 (Version None)
Quarter: 2012Q2

REPORT INFORMATION
  Report Type: 
  Country: None (occurrence: None)
  Receive Date: 20120402
  Receipt Date: 20120319
  Transmission Date: 20120825
  Serious: Yes (Hospitalization)
  Sender: FDA-Public Use
  Company Number: 2012SP005039

PATIENT
  Age: 36 Year
  Sex: Male

DRUGS (1)
  1. PEGATRON (PEGYLATED INTERFERON ALFA-2B W/RIBAVIRIN) [Suspect]
     Indication: HEPATITIS C
     Dates: start: 20110927

REACTIONS (5)
  - DYSPNOEA [None]
  - WOLFF-PARKINSON-WHITE SYNDROME [None]
  - EMOTIONAL DISORDER [None]
  - RASH [None]
  - ARTERIAL OCCLUSIVE DISEASE [None]
